FAERS Safety Report 8493502-2 (Version None)
Quarter: 2012Q2

REPORT INFORMATION
  Report Type: 
  Country: None (occurrence: None)
  Receive Date: 20120402
  Receipt Date: 20080923
  Transmission Date: 20120825
  Serious: Yes (Other)
  Sender: FDA-Public Use
  Company Number: PHEH2008US08518

PATIENT
  Sex: Female

DRUGS (1)
  1. EXFORGE [Suspect]
     Dosage: 5MG AML 160 MG VAL, QD

REACTIONS (2)
  - VISUAL IMPAIRMENT [None]
  - HYPOTENSION [None]
